FAERS Safety Report 20198992 (Version 1)
Quarter: 2021Q4

REPORT INFORMATION
  Report Type: Spontaneous
  Country: CN (occurrence: None)
  Receive Date: 20211217
  Receipt Date: 20211217
  Transmission Date: 20220304
  Serious: Yes (Hospitalization, Other)
  Sender: FDA-Public Use
  Company Number: 2021A868650

PATIENT
  Age: 65 Year
  Sex: Female
  Weight: 50 kg

DRUGS (6)
  1. OSIMERTINIB MESYLATE [Suspect]
     Active Substance: OSIMERTINIB MESYLATE
     Indication: Lung cancer metastatic
     Route: 048
     Dates: start: 20210525, end: 20210715
  2. OSIMERTINIB MESYLATE [Suspect]
     Active Substance: OSIMERTINIB MESYLATE
     Indication: Non-small cell lung cancer stage IV
     Route: 048
     Dates: start: 20210525, end: 20210715
  3. CALCIUM GLUCONATE\DEXTROSE\MAGNESIUM CHLORIDE\POTASSIUM CHLORIDE\SODIU [Suspect]
     Active Substance: CALCIUM GLUCONATE\DEXTROSE\MAGNESIUM CHLORIDE\POTASSIUM CHLORIDE\SODIUM ACETATE\SODIUM CHLORIDE\SODI
     Indication: Metastases to bone
     Route: 041
     Dates: start: 20210528, end: 20210528
  4. CALCIUM CARBONATE\CHOLECALCIFEROL [Concomitant]
     Active Substance: CALCIUM CARBONATE\CHOLECALCIFEROL
     Indication: Bone pain
     Route: 048
     Dates: start: 20210527, end: 20210601
  5. RABEPRAZOLE SODIUM [Concomitant]
     Active Substance: RABEPRAZOLE SODIUM
     Indication: Dyspepsia
     Route: 048
     Dates: start: 20210528, end: 20210529
  6. RABEPRAZOLE SODIUM [Concomitant]
     Active Substance: RABEPRAZOLE SODIUM
     Indication: Abdominal discomfort
     Route: 048
     Dates: start: 20210528, end: 20210529

REACTIONS (1)
  - Myelosuppression [Recovering/Resolving]

NARRATIVE: CASE EVENT DATE: 20210713
